FAERS Safety Report 21354597 (Version 2)
Quarter: 2022Q4

REPORT INFORMATION
  Report Type: Spontaneous
  Country: DE (occurrence: DE)
  Receive Date: 20220920
  Receipt Date: 20221021
  Transmission Date: 20230113
  Serious: Yes (Other)
  Sender: FDA-Public Use
  Company Number: DE-NOVARTISPH-NVSC2022DE211678

PATIENT
  Age: 72 Year
  Sex: Female

DRUGS (2)
  1. BEOVU [Suspect]
     Active Substance: BROLUCIZUMAB-DBLL
     Indication: Neovascular age-related macular degeneration
     Dosage: UNK, (INJECTION, 1X)
     Route: 031
     Dates: start: 20220520, end: 2022
  2. BEOVU [Suspect]
     Active Substance: BROLUCIZUMAB-DBLL
     Indication: Diabetic retinal oedema

REACTIONS (2)
  - Scleritis [Recovered/Resolved]
  - Episcleritis [Recovered/Resolved]

NARRATIVE: CASE EVENT DATE: 20220101
